FAERS Safety Report 20777957 (Version 1)
Quarter: 2022Q2

REPORT INFORMATION
  Report Type: Spontaneous
  Country: GB (occurrence: GB)
  Receive Date: 20220503
  Receipt Date: 20220503
  Transmission Date: 20220721
  Serious: Yes (Other)
  Sender: FDA-Public Use
  Company Number: GB-RELONP-2022SCRC037556

PATIENT

DRUGS (1)
  1. RISPERIDONE [Suspect]
     Active Substance: RISPERIDONE
     Indication: Product used for unknown indication
     Dosage: 4 MILLIGRAM (4MG, FILM COATED)
     Route: 065

REACTIONS (8)
  - Hallucination, visual [Unknown]
  - Suicidal ideation [Unknown]
  - Depressed mood [Unknown]
  - Condition aggravated [Unknown]
  - Soliloquy [Unknown]
  - Insomnia [Unknown]
  - Decreased appetite [Unknown]
  - Disturbance in attention [Unknown]
